FAERS Safety Report 5331207-7 (Version None)
Quarter: 2007Q2

REPORT INFORMATION
  Report Type: 
  Country: None (occurrence: None)
  Receive Date: 20070522
  Receipt Date: 20070501
  Transmission Date: 20071010
  Serious: No
  Sender: FDA-Public Use
  Company Number: US-JNJFOC-20070500817

PATIENT
  Sex: Male
  Weight: 92.99 kg

DRUGS (2)
  1. INVEGA [Suspect]
     Indication: SCHIZOPHRENIA
     Route: 048
  2. HALDOL [Concomitant]

REACTIONS (3)
  - DISINHIBITION [None]
  - DISTURBANCE IN SOCIAL BEHAVIOUR [None]
  - WEIGHT DECREASED [None]
